FAERS Safety Report 22607315 (Version 1)
Quarter: 2023Q2

REPORT INFORMATION
  Report Type: Spontaneous
  Country: US (occurrence: US)
  Receive Date: 20230615
  Receipt Date: 20230615
  Transmission Date: 20230721
  Serious: Yes (Hospitalization, Other)
  Sender: FDA-Public Use
  Company Number: US-JNJFOC-20230613573

PATIENT
  Age: 41 Year
  Sex: Female

DRUGS (4)
  1. INVEGA SUSTENNA [Suspect]
     Active Substance: PALIPERIDONE PALMITATE
     Indication: Schizophrenia
     Dosage: PRESCRIPTION NO- 1989535
     Route: 030
     Dates: start: 202303
  2. INVEGA SUSTENNA [Suspect]
     Active Substance: PALIPERIDONE PALMITATE
  3. INVEGA SUSTENNA [Suspect]
     Active Substance: PALIPERIDONE PALMITATE
  4. LORAZEPAM [Concomitant]
     Active Substance: LORAZEPAM

REACTIONS (10)
  - Hospitalisation [Unknown]
  - Schizophrenia [Unknown]
  - Decreased appetite [Unknown]
  - Dysphagia [Unknown]
  - Menstrual disorder [Unknown]
  - Dizziness [Unknown]
  - Tremor [Unknown]
  - Vision blurred [Unknown]
  - Constipation [Unknown]
  - Product dose omission issue [Unknown]

NARRATIVE: CASE EVENT DATE: 20230101
